FAERS Safety Report 22352684 (Version 6)
Quarter: 2025Q2

REPORT INFORMATION
  Report Type: Spontaneous
  Country: CA (occurrence: CA)
  Receive Date: 20230523
  Receipt Date: 20250604
  Transmission Date: 20250717
  Serious: Yes (Hospitalization, Other)
  Sender: CELLTRION
  Company Number: CA-CELLTRION INC.-2021CA018441

PATIENT

DRUGS (34)
  1. INFLECTRA [Suspect]
     Active Substance: INFLIXIMAB-DYYB
     Indication: Crohn^s disease
     Route: 042
     Dates: start: 20220119
  2. INFLECTRA [Suspect]
     Active Substance: INFLIXIMAB-DYYB
     Route: 042
     Dates: start: 20220214
  3. INFLECTRA [Suspect]
     Active Substance: INFLIXIMAB-DYYB
     Route: 042
     Dates: start: 20220510, end: 20220510
  4. INFLECTRA [Suspect]
     Active Substance: INFLIXIMAB-DYYB
     Route: 042
     Dates: start: 20220711, end: 20220711
  5. INFLECTRA [Suspect]
     Active Substance: INFLIXIMAB-DYYB
     Route: 042
     Dates: start: 20220902
  6. INFLECTRA [Suspect]
     Active Substance: INFLIXIMAB-DYYB
     Route: 042
     Dates: start: 20221018
  7. INFLECTRA [Suspect]
     Active Substance: INFLIXIMAB-DYYB
     Route: 042
     Dates: start: 20230112
  8. INFLECTRA [Suspect]
     Active Substance: INFLIXIMAB-DYYB
     Route: 042
     Dates: start: 20230222
  9. INFLECTRA [Suspect]
     Active Substance: INFLIXIMAB-DYYB
     Route: 042
     Dates: start: 20230405
  10. INFLECTRA [Suspect]
     Active Substance: INFLIXIMAB-DYYB
     Route: 042
     Dates: start: 20230517
  11. INFLECTRA [Suspect]
     Active Substance: INFLIXIMAB-DYYB
     Route: 042
     Dates: start: 20230614
  12. INFLECTRA [Suspect]
     Active Substance: INFLIXIMAB-DYYB
     Route: 042
     Dates: start: 20230614
  13. INFLECTRA [Suspect]
     Active Substance: INFLIXIMAB-DYYB
     Route: 042
     Dates: start: 20230726
  14. INFLECTRA [Suspect]
     Active Substance: INFLIXIMAB-DYYB
     Route: 042
     Dates: start: 20230906
  15. INFLECTRA [Suspect]
     Active Substance: INFLIXIMAB-DYYB
     Route: 042
     Dates: start: 20231018
  16. INFLECTRA [Suspect]
     Active Substance: INFLIXIMAB-DYYB
     Route: 042
     Dates: start: 20231130
  17. INFLECTRA [Suspect]
     Active Substance: INFLIXIMAB-DYYB
     Route: 042
     Dates: start: 20240221
  18. INFLECTRA [Suspect]
     Active Substance: INFLIXIMAB-DYYB
     Route: 042
     Dates: start: 20240403
  19. INFLECTRA [Suspect]
     Active Substance: INFLIXIMAB-DYYB
     Route: 042
     Dates: start: 20240516
  20. INFLECTRA [Suspect]
     Active Substance: INFLIXIMAB-DYYB
     Route: 042
     Dates: start: 20240516
  21. INFLECTRA [Suspect]
     Active Substance: INFLIXIMAB-DYYB
     Route: 042
     Dates: start: 20240627
  22. INFLECTRA [Suspect]
     Active Substance: INFLIXIMAB-DYYB
     Route: 042
     Dates: start: 20240808
  23. INFLECTRA [Suspect]
     Active Substance: INFLIXIMAB-DYYB
     Route: 042
     Dates: start: 20240918
  24. INFLECTRA [Suspect]
     Active Substance: INFLIXIMAB-DYYB
     Route: 042
     Dates: start: 20241031
  25. INFLECTRA [Suspect]
     Active Substance: INFLIXIMAB-DYYB
     Route: 042
     Dates: start: 20241212
  26. INFLECTRA [Suspect]
     Active Substance: INFLIXIMAB-DYYB
     Route: 042
     Dates: start: 20250123
  27. INFLECTRA [Suspect]
     Active Substance: INFLIXIMAB-DYYB
     Route: 042
     Dates: start: 20250307
  28. INFLECTRA [Suspect]
     Active Substance: INFLIXIMAB-DYYB
     Route: 042
     Dates: start: 20250416
  29. INFLECTRA [Suspect]
     Active Substance: INFLIXIMAB-DYYB
     Route: 042
     Dates: start: 20250528
  30. CITALOPRAM [Concomitant]
     Active Substance: CITALOPRAM
  31. FOLIC ACID [Concomitant]
     Active Substance: FOLIC ACID
  32. METHOTREXATE [Concomitant]
     Active Substance: METHOTREXATE
     Dosage: 1 DF, WEEKLY
     Route: 058
     Dates: start: 2019
  33. PANTOPRAZOLE [Concomitant]
     Active Substance: PANTOPRAZOLE
  34. VITAMINS NOS [Concomitant]
     Active Substance: VITAMINS

REACTIONS (15)
  - Anal abscess [Recovering/Resolving]
  - Abscess [Recovered/Resolved]
  - Fatigue [Recovering/Resolving]
  - Condition aggravated [Recovering/Resolving]
  - Drug level decreased [Unknown]
  - Vein collapse [Unknown]
  - Poor venous access [Unknown]
  - Anorectal disorder [Not Recovered/Not Resolved]
  - Anal fissure [Recovered/Resolved]
  - Fistula [Recovered/Resolved]
  - Arthralgia [Recovered/Resolved]
  - COVID-19 [Recovered/Resolved]
  - Off label use [Unknown]
  - Off label use [Unknown]
  - Intentional product use issue [Unknown]

NARRATIVE: CASE EVENT DATE: 20220101
